FAERS Safety Report 22267865 (Version 2)
Quarter: 2023Q2

REPORT INFORMATION
  Report Type: Report from Study
  Country: US (occurrence: US)
  Receive Date: 20230430
  Receipt Date: 20230613
  Transmission Date: 20230721
  Serious: No
  Sender: FDA-Public Use
  Company Number: US-002147023-NVSC2023US098429

PATIENT
  Sex: Female
  Weight: 105.6 kg

DRUGS (2)
  1. METHOTREXATE [Suspect]
     Active Substance: METHOTREXATE
     Indication: Psoriasis
     Dosage: 2.5 MG, TIW (3X WEEKLY, 12 HRS APART)
     Route: 048
     Dates: start: 20221128, end: 202304
  2. METHOTREXATE [Suspect]
     Active Substance: METHOTREXATE
     Indication: Guttate psoriasis

REACTIONS (1)
  - Drug ineffective [Unknown]
